FAERS Safety Report 14737520 (Version 1)
Quarter: 2018Q2

REPORT INFORMATION
  Report Type: Spontaneous
  Country: GB (occurrence: GB)
  Receive Date: 20180409
  Receipt Date: 20180409
  Transmission Date: 20180711
  Serious: Yes (Other)
  Sender: FDA-Public Use
  Company Number: GB-PFIZER INC-2018140957

PATIENT
  Age: 37 Year
  Sex: Male
  Weight: 88 kg

DRUGS (7)
  1. VARENICLINE TARTRATE [Suspect]
     Active Substance: VARENICLINE TARTRATE
     Indication: SMOKING CESSATION THERAPY
     Dosage: UNK
     Dates: start: 20180222
  2. CODEINE PHOSPHATE [Concomitant]
     Active Substance: CODEINE PHOSPHATE
     Indication: PAIN
     Dosage: 1-2 FOUR TIMES DAILY AS REQUIRED.
     Dates: start: 20180220
  3. ZEROBASE /00103901/ [Concomitant]
     Dosage: USE UP TO 3 OR 4 TIMES DAILY AS NEEDED
     Dates: start: 20171204, end: 20180101
  4. HYDROCORTISONE. [Concomitant]
     Active Substance: HYDROCORTISONE
     Dosage: 2 DF, 1X/DAY (APPLY POTENCY MILD)
     Dates: start: 20171215, end: 20171222
  5. OMEPRAZOLE. [Concomitant]
     Active Substance: OMEPRAZOLE
     Dosage: 2 DF, 1X/DAY
     Dates: start: 20180220
  6. GABAPENTIN. [Concomitant]
     Active Substance: GABAPENTIN
     Dosage: (MAXIMUM ONE TABLET 3 TIMES
     Dates: start: 20171215, end: 20180112
  7. SALBUTAMOL [Concomitant]
     Active Substance: ALBUTEROL
     Dosage: 8 DF, 1X/DAY
     Route: 055
     Dates: start: 20180221

REACTIONS (1)
  - Bronchospasm [Recovered/Resolved]

NARRATIVE: CASE EVENT DATE: 20180222
